FAERS Safety Report 6475178-9 (Version None)
Quarter: 2009Q4

REPORT INFORMATION
  Report Type: 
  Country: None (occurrence: None)
  Receive Date: 20091204
  Receipt Date: 20090622
  Transmission Date: 20100525
  Serious: No
  Sender: FDA-Public Use
  Company Number: US-ELI_LILLY_AND_COMPANY-US200903004948

PATIENT
  Age: 48 Year
  Sex: Female

DRUGS (1)
  1. CYMBALTA [Suspect]
     Indication: DEPRESSION
     Dosage: 60 MG, UNK
     Dates: start: 20080901

REACTIONS (4)
  - HEADACHE [None]
  - MIGRAINE [None]
  - MUSCULAR WEAKNESS [None]
  - PARAESTHESIA [None]
